FAERS Safety Report 14605530 (Version 2)
Quarter: 2018Q3

REPORT INFORMATION
  Report Type: Other
  Country: US (occurrence: US)
  Receive Date: 20180306
  Receipt Date: 20180831
  Transmission Date: 20181010
  Serious: No
  Sender: FDA-Public Use
  Company Number: US-INTERCEPT-PMOCA2018000029

PATIENT

DRUGS (6)
  1. OCALIVA [Suspect]
     Active Substance: OBETICHOLIC ACID
     Indication: PRIMARY BILIARY CHOLANGITIS
     Dosage: 5 MG, QW
     Route: 048
     Dates: start: 20170324, end: 201705
  2. VITAMIN A [Concomitant]
     Active Substance: VITAMIN A
  3. VITAMIN D [Concomitant]
     Active Substance: CHOLECALCIFEROL
  4. OCALIVA [Suspect]
     Active Substance: OBETICHOLIC ACID
     Dosage: 5 MG, QD
     Route: 048
     Dates: start: 20180620
  5. PRAVASTATIN. [Concomitant]
     Active Substance: PRAVASTATIN
  6. URSO [Suspect]
     Active Substance: URSODIOL
     Route: 065

REACTIONS (4)
  - Influenza [Recovering/Resolving]
  - Diarrhoea [Unknown]
  - Fatigue [Unknown]
  - Abdominal pain upper [Unknown]

NARRATIVE: CASE EVENT DATE: 20171228
